FAERS Safety Report 17048866 (Version 5)
Quarter: 2025Q3

REPORT INFORMATION
  Report Type: Spontaneous
  Country: US (occurrence: US)
  Receive Date: 20191119
  Receipt Date: 20250714
  Transmission Date: 20251020
  Serious: No
  Sender: SANOFI AVENTIS
  Company Number: US-SA-2019SA313562

PATIENT
  Age: 51 Year
  Sex: Female

DRUGS (11)
  1. DUPIXENT [Suspect]
     Active Substance: DUPILUMAB
     Indication: Dermatitis atopic
     Route: 058
  2. DUPIXENT [Suspect]
     Active Substance: DUPILUMAB
     Indication: Dermatitis allergic
     Dosage: 300 MG, QOW
     Route: 058
     Dates: start: 20190816, end: 20231214
  3. DUPIXENT [Suspect]
     Active Substance: DUPILUMAB
     Indication: Dermatitis atopic
     Dosage: 300 MG, QOW
     Route: 058
     Dates: start: 20250328
  4. DUPIXENT [Suspect]
     Active Substance: DUPILUMAB
     Indication: Dermatitis allergic
  5. BACLOFEN [Concomitant]
     Active Substance: BACLOFEN
  6. ESCITALOPRAM [Concomitant]
     Active Substance: ESCITALOPRAM OXALATE
  7. METOPROLOL [Concomitant]
     Active Substance: METOPROLOL
  8. MYRBETRIQ [Concomitant]
     Active Substance: MIRABEGRON
  9. ROSUVASTATIN [Concomitant]
     Active Substance: ROSUVASTATIN
  10. ZOLPIDEM [Concomitant]
     Active Substance: ZOLPIDEM TARTRATE
  11. TECFIDERA [Concomitant]
     Active Substance: DIMETHYL FUMARATE

REACTIONS (8)
  - Discomfort [Unknown]
  - Infection [Unknown]
  - Ocular hyperaemia [Unknown]
  - Eczema [Unknown]
  - Rash [Unknown]
  - Sleep disorder due to a general medical condition [Not Recovered/Not Resolved]
  - Product prescribing issue [Unknown]
  - Incorrect dose administered [Unknown]

NARRATIVE: CASE EVENT DATE: 20200601
